FAERS Safety Report 19497546 (Version 13)
Quarter: 2025Q1

REPORT INFORMATION
  Report Type: Report from Study
  Country: CA (occurrence: CA)
  Receive Date: 20210706
  Receipt Date: 20250213
  Transmission Date: 20250408
  Serious: Yes (Other)
  Sender: TAKEDA
  Company Number: CA-TAKEDA-CA202002528

PATIENT
  Age: 47 Year
  Sex: Female

DRUGS (40)
  1. LANADELUMAB [Suspect]
     Active Substance: LANADELUMAB
     Indication: Hereditary angioedema
     Dosage: UNK UNK, Q2WEEKS
     Dates: start: 20180119
  2. LANADELUMAB [Suspect]
     Active Substance: LANADELUMAB
     Indication: Hereditary angioedema with C1 esterase inhibitor deficiency
     Dosage: 300 MILLIGRAM, Q2WEEKS
     Dates: start: 20181119
  3. LANADELUMAB [Suspect]
     Active Substance: LANADELUMAB
     Dosage: 300 MILLIGRAM, Q2WEEKS
     Dates: start: 20200124
  4. LANADELUMAB [Suspect]
     Active Substance: LANADELUMAB
     Dosage: 300 MILLIGRAM, Q2WEEKS
  5. LANADELUMAB [Suspect]
     Active Substance: LANADELUMAB
     Dosage: 300 MILLIGRAM, Q2WEEKS
  6. LANADELUMAB [Suspect]
     Active Substance: LANADELUMAB
     Dosage: 2 DOSAGE FORM, Q4WEEKS
     Dates: start: 20200124
  7. LANADELUMAB [Suspect]
     Active Substance: LANADELUMAB
     Dosage: 300 MILLIGRAM, Q2WEEKS
     Dates: start: 20200306
  8. LANADELUMAB [Suspect]
     Active Substance: LANADELUMAB
     Dosage: 300 MILLIGRAM, Q2WEEKS
     Dates: start: 20200320
  9. LANADELUMAB [Suspect]
     Active Substance: LANADELUMAB
     Dosage: UNK UNK, Q4WEEKS
  10. LANADELUMAB [Suspect]
     Active Substance: LANADELUMAB
     Dosage: 2 DOSAGE FORM, Q4WEEKS
  11. LANADELUMAB [Suspect]
     Active Substance: LANADELUMAB
     Dosage: UNK, Q4WEEKS
  12. LANADELUMAB [Suspect]
     Active Substance: LANADELUMAB
     Dosage: UNK, Q4WEEKS
  13. FIRAZYR [Suspect]
     Active Substance: ICATIBANT ACETATE
     Indication: Hereditary angioedema
  14. FIRAZYR [Suspect]
     Active Substance: ICATIBANT ACETATE
  15. FIRAZYR [Suspect]
     Active Substance: ICATIBANT ACETATE
  16. FIRAZYR [Suspect]
     Active Substance: ICATIBANT ACETATE
  17. FIRAZYR [Suspect]
     Active Substance: ICATIBANT ACETATE
  18. FIRAZYR [Suspect]
     Active Substance: ICATIBANT ACETATE
  19. FIRAZYR [Suspect]
     Active Substance: ICATIBANT ACETATE
  20. FIRAZYR [Suspect]
     Active Substance: ICATIBANT ACETATE
  21. FIRAZYR [Suspect]
     Active Substance: ICATIBANT ACETATE
  22. FIRAZYR [Suspect]
     Active Substance: ICATIBANT ACETATE
  23. FIRAZYR [Suspect]
     Active Substance: ICATIBANT ACETATE
  24. FIRAZYR [Suspect]
     Active Substance: ICATIBANT ACETATE
  25. FIRAZYR [Suspect]
     Active Substance: ICATIBANT ACETATE
  26. FIRAZYR [Suspect]
     Active Substance: ICATIBANT ACETATE
  27. FIRAZYR [Suspect]
     Active Substance: ICATIBANT ACETATE
  28. FIRAZYR [Suspect]
     Active Substance: ICATIBANT ACETATE
  29. PFIZER-BIONTECH COVID-19 VACCINE [Suspect]
     Active Substance: TOZINAMERAN
     Indication: Product used for unknown indication
  30. PFIZER-BIONTECH COVID-19 VACCINE [Suspect]
     Active Substance: TOZINAMERAN
  31. IBUPROFEN [Concomitant]
     Active Substance: IBUPROFEN
     Indication: Product used for unknown indication
  32. TYLENOL [Concomitant]
     Active Substance: ACETAMINOPHEN
     Indication: Product used for unknown indication
  33. RELPAX [Concomitant]
     Active Substance: ELETRIPTAN HYDROBROMIDE
     Indication: Migraine
  34. EPIPEN [Concomitant]
     Active Substance: EPINEPHRINE
     Indication: Migraine
  35. CETIRIZINE HYDROCHLORIDE\PSEUDOEPHEDRINE HYDROCHLORIDE [Concomitant]
     Active Substance: CETIRIZINE HYDROCHLORIDE\PSEUDOEPHEDRINE HYDROCHLORIDE
     Indication: Product used for unknown indication
  36. BERINERT [Concomitant]
     Active Substance: HUMAN C1-ESTERASE INHIBITOR
     Indication: Product used for unknown indication
     Dosage: 3000 INTERNATIONAL UNIT, Q72H
     Dates: start: 20180921
  37. ERYTHROMYCIN [Concomitant]
     Active Substance: ERYTHROMYCIN
     Indication: Product used for unknown indication
  38. TETRACYCLINE [Concomitant]
     Active Substance: TETRACYCLINE
     Indication: Product used for unknown indication
  39. ZOPICLONE [Concomitant]
     Active Substance: ZOPICLONE
     Indication: Complex regional pain syndrome
     Dosage: 7.5 MILLIGRAM, QD
  40. Reactine [Concomitant]

REACTIONS (35)
  - Influenza like illness [Recovered/Resolved]
  - Cough [Unknown]
  - Product administration interrupted [Unknown]
  - Inappropriate schedule of product administration [Unknown]
  - Intentional product misuse [Unknown]
  - Upper-airway cough syndrome [Unknown]
  - Complex regional pain syndrome [Not Recovered/Not Resolved]
  - Hereditary angioedema [Recovered/Resolved]
  - Injection site urticaria [Unknown]
  - Nasopharyngitis [Unknown]
  - Lacrimation increased [Unknown]
  - Rhinorrhoea [Unknown]
  - Stress [Unknown]
  - Limb injury [Unknown]
  - Weight decreased [Unknown]
  - Pyrexia [Unknown]
  - Nervousness [Unknown]
  - Eye disorder [Unknown]
  - Illness [Unknown]
  - Retching [Unknown]
  - Drug ineffective [Unknown]
  - Infusion site pain [Unknown]
  - Depression [Unknown]
  - Migraine [Not Recovered/Not Resolved]
  - Pain [Unknown]
  - Mental disorder [Unknown]
  - Nausea [Recovered/Resolved]
  - Vomiting [Unknown]
  - Menstrual disorder [Unknown]
  - Needle issue [Recovered/Resolved]
  - Injury associated with device [Unknown]
  - Product temperature excursion issue [Unknown]
  - Injection site haemorrhage [Unknown]
  - Injection site rash [Unknown]
  - Injection site erythema [Unknown]

NARRATIVE: CASE EVENT DATE: 20200101
